FAERS Safety Report 20828292 (Version 4)
Quarter: 2022Q2

REPORT INFORMATION
  Report Type: Spontaneous
  Country: US (occurrence: US)
  Receive Date: 20220513
  Receipt Date: 20220527
  Transmission Date: 20220721
  Serious: Yes (Other)
  Sender: FDA-Public Use
  Company Number: US-SA-SAC20220505000573

PATIENT
  Age: 63 Year
  Sex: Male

DRUGS (14)
  1. DUPIXENT [Suspect]
     Active Substance: DUPILUMAB
     Indication: Dermatitis atopic
     Dosage: 600 MG, 1X
     Route: 058
     Dates: start: 20220427, end: 20220427
  2. DUPIXENT [Suspect]
     Active Substance: DUPILUMAB
     Dosage: 300 MG, QOW
     Route: 058
  3. DILTIAZEM [Concomitant]
     Active Substance: DILTIAZEM
  4. LABETALOL HYDROCHLORIDE [Concomitant]
     Active Substance: LABETALOL HYDROCHLORIDE
  5. LABETALOL HYDROCHLORIDE [Concomitant]
     Active Substance: LABETALOL HYDROCHLORIDE
  6. VITAMIN D3 [Concomitant]
     Active Substance: CHOLECALCIFEROL
  7. ATORVASTATIN CALCIUM [Concomitant]
     Active Substance: ATORVASTATIN CALCIUM
  8. FUROSEMIDE [Concomitant]
     Active Substance: FUROSEMIDE
  9. GLIPIZIDE [Concomitant]
     Active Substance: GLIPIZIDE
  10. GABAPENTIN [Concomitant]
     Active Substance: GABAPENTIN
  11. DULOXETINE [Concomitant]
     Active Substance: DULOXETINE
  12. DULOXETINE HYDROCHLORIDE [Concomitant]
     Active Substance: DULOXETINE HYDROCHLORIDE
  13. METFORMIN HYDROCHLORIDE [Concomitant]
     Active Substance: METFORMIN HYDROCHLORIDE
  14. HYDROXYZINE HYDROCHLORIDE [Concomitant]
     Active Substance: HYDROXYZINE HYDROCHLORIDE

REACTIONS (11)
  - Neuropathy peripheral [Unknown]
  - Dizziness [Unknown]
  - Vision blurred [Unknown]
  - Decreased appetite [Unknown]
  - Pruritus [Recovering/Resolving]
  - Pain in extremity [Unknown]
  - Fall [Unknown]
  - Diabetic foot [Unknown]
  - Pain [Unknown]
  - Sleep deficit [Unknown]
  - Self-injurious ideation [Unknown]

NARRATIVE: CASE EVENT DATE: 20220401
